FAERS Safety Report 13062774 (Version 2)
Quarter: 2017Q1

REPORT INFORMATION
  Report Type: Spontaneous
  Country: TN (occurrence: TN)
  Receive Date: 20161226
  Receipt Date: 20170124
  Transmission Date: 20170428
  Serious: Yes (Other)
  Sender: FDA-Public Use
  Company Number: TN-AMGEN-TUNSP2016183000

PATIENT
  Age: 31 Year
  Sex: Male

DRUGS (1)
  1. ENBREL [Suspect]
     Active Substance: ETANERCEPT
     Indication: ANKYLOSING SPONDYLITIS
     Dosage: 50 MG, WEEKLY
     Route: 058

REACTIONS (1)
  - Phlebitis [Unknown]
